FAERS Safety Report 7569048-2 (Version None)
Quarter: 2011Q2

REPORT INFORMATION
  Report Type: 
  Country: None (occurrence: None)
  Receive Date: 20110623
  Receipt Date: 20110616
  Transmission Date: 20111010
  Serious: Yes (Other)
  Sender: FDA-Public Use
  Company Number: US-PFIZER INC-2011132841

PATIENT
  Sex: Male

DRUGS (3)
  1. OXYBUTYNIN [Suspect]
  2. DETROL LA [Suspect]
     Dosage: UNK
  3. DETROL [Suspect]

REACTIONS (2)
  - AMNESIA [None]
  - CONFUSIONAL STATE [None]
